FAERS Safety Report 5489414-9 (Version None)
Quarter: 2007Q4

REPORT INFORMATION
  Report Type: 
  Country: None (occurrence: None)
  Receive Date: 20071018
  Receipt Date: 20071012
  Transmission Date: 20080405
  Serious: Yes (Other)
  Sender: FDA-Public Use
  Company Number: CA-ASTRAZENECA-2007UW23976

PATIENT
  Age: 48 Year
  Sex: Female

DRUGS (3)
  1. SEROQUEL [Suspect]
     Route: 048
  2. LOXAPINE [Concomitant]
  3. IBUPROFEN [Concomitant]

REACTIONS (6)
  - AMENORRHOEA [None]
  - BLOOD GLUCOSE INCREASED [None]
  - FATIGUE [None]
  - MEMORY IMPAIRMENT [None]
  - RESTLESSNESS [None]
  - VISION BLURRED [None]
